FAERS Safety Report 7938331-0 (Version None)
Quarter: 2011Q4

REPORT INFORMATION
  Report Type: 
  Country: None (occurrence: None)
  Receive Date: 20111123
  Receipt Date: 20111122
  Transmission Date: 20120403
  Serious: Yes (Other)
  Sender: FDA-Public Use
  Company Number: ES-PFIZER INC-2010097739

PATIENT
  Age: 72 Year
  Sex: Female
  Weight: 92 kg

DRUGS (9)
  1. ATACAND [Concomitant]
     Dosage: UNK
     Route: 048
  2. EZETIMIBE [Concomitant]
     Dosage: UNK
     Route: 048
  3. CLOPIDOGREL BISULFATE [Concomitant]
     Dosage: UNK
     Route: 048
  4. PREVENCOR [Concomitant]
     Dosage: UNK
     Route: 048
  5. LEVOTHYROXINE SODIUM [Concomitant]
     Dosage: UNK
     Route: 048
  6. CARDURA [Suspect]
     Indication: HYPERTENSION
     Dosage: 4 MG, DAILY
     Dates: start: 20090101
  7. XENICAL [Interacting]
     Indication: OBESITY
     Dosage: 240 MG, DAILY
     Route: 048
     Dates: start: 20100601
  8. TORSEMIDE [Concomitant]
     Dosage: 10 MG, UNK
     Route: 048
  9. ASPIRIN [Concomitant]
     Dosage: UNK
     Route: 048

REACTIONS (3)
  - DRUG INTERACTION [None]
  - MEDICATION RESIDUE [None]
  - BLOOD PRESSURE INADEQUATELY CONTROLLED [None]
